FAERS Safety Report 7609949-X (Version None)
Quarter: 2011Q3

REPORT INFORMATION
  Report Type: 
  Country: None (occurrence: None)
  Receive Date: 20110714
  Receipt Date: 20100722
  Transmission Date: 20111222
  Serious: No
  Sender: FDA-Public Use
  Company Number: US-TYCO HEALTHCARE/MALLINCKRODT-T201001725

PATIENT

DRUGS (2)
  1. ALL OTHER THERAPEUTIC PRODUCTS [Concomitant]
     Indication: PAIN
  2. OXYCODONE HCL [Suspect]
     Indication: PAIN
     Dosage: UNK

REACTIONS (4)
  - DRY MOUTH [None]
  - PAIN [None]
  - DEHYDRATION [None]
  - DRUG EFFECT DECREASED [None]
